FAERS Safety Report 18014962 (Version 1)
Quarter: 2020Q3

REPORT INFORMATION
  Report Type: Report from Study
  Country: US (occurrence: US)
  Receive Date: 20200713
  Receipt Date: 20200713
  Transmission Date: 20201103
  Serious: Yes (Other)
  Sender: FDA-Public Use
  Company Number: NVSC2020US195173

PATIENT
  Age: 79 Year
  Sex: Male

DRUGS (2)
  1. ENTRESTO [Suspect]
     Active Substance: SACUBITRIL\VALSARTAN
     Indication: CARDIAC FAILURE
     Dosage: 50 MG, BID
     Route: 048
     Dates: start: 201501, end: 202006
  2. ENTRESTO [Suspect]
     Active Substance: SACUBITRIL\VALSARTAN
     Dosage: 50 MG, BID
     Route: 048
     Dates: start: 202007

REACTIONS (7)
  - Deafness [Not Recovered/Not Resolved]
  - Tinnitus [Not Recovered/Not Resolved]
  - Oral mucosal eruption [Unknown]
  - Product dose omission issue [Unknown]
  - Concomitant disease aggravated [Not Recovered/Not Resolved]
  - Fatigue [Unknown]
  - Asthenia [Unknown]

NARRATIVE: CASE EVENT DATE: 202006
